FAERS Safety Report 11030899 (Version 4)
Quarter: 2016Q2

REPORT INFORMATION
  Report Type: Report from Study
  Country: US (occurrence: US)
  Receive Date: 20150415
  Receipt Date: 20160426
  Transmission Date: 20160815
  Serious: Yes (Other)
  Sender: FDA-Public Use
  Company Number: US-SA-2014SA093276

PATIENT
  Age: 56 Year
  Sex: Female

DRUGS (9)
  1. VITAMIN D [Concomitant]
     Active Substance: CHOLECALCIFEROL
  2. AUBAGIO [Suspect]
     Active Substance: TERIFLUNOMIDE
     Indication: MULTIPLE SCLEROSIS
     Route: 048
  3. AUBAGIO [Suspect]
     Active Substance: TERIFLUNOMIDE
     Indication: MULTIPLE SCLEROSIS
     Route: 048
     Dates: start: 20140706
  4. SYNTHROID [Concomitant]
     Active Substance: LEVOTHYROXINE SODIUM
     Indication: THYROID DISORDER
  5. AUBAGIO [Suspect]
     Active Substance: TERIFLUNOMIDE
     Indication: MULTIPLE SCLEROSIS
     Route: 048
  6. ARMOUR THYROID [Concomitant]
     Active Substance: THYROID, PORCINE
     Indication: THYROID DISORDER
     Dates: start: 2014
  7. AUBAGIO [Suspect]
     Active Substance: TERIFLUNOMIDE
     Indication: MULTIPLE SCLEROSIS
     Route: 048
  8. OSCAL [Concomitant]
     Active Substance: CALCIUM CARBONATE
  9. NUVIGIL [Concomitant]
     Active Substance: ARMODAFINIL

REACTIONS (35)
  - Neuralgia [Unknown]
  - Burning sensation [Not Recovered/Not Resolved]
  - Pain in extremity [Recovering/Resolving]
  - Toothache [Recovering/Resolving]
  - Burning sensation [Not Recovered/Not Resolved]
  - Arthropathy [Not Recovered/Not Resolved]
  - Burning sensation [Recovering/Resolving]
  - Fatigue [Not Recovered/Not Resolved]
  - Pain in extremity [Recovering/Resolving]
  - Mobility decreased [Unknown]
  - Glossodynia [Recovering/Resolving]
  - Blood thyroid stimulating hormone increased [Not Recovered/Not Resolved]
  - Upper limb fracture [Unknown]
  - Anxiety [Recovering/Resolving]
  - Depression [Not Recovered/Not Resolved]
  - Condition aggravated [Not Recovered/Not Resolved]
  - Weight decreased [Recovering/Resolving]
  - Drug dose omission [Unknown]
  - Fall [Unknown]
  - Abdominal discomfort [Not Recovered/Not Resolved]
  - Joint swelling [Not Recovered/Not Resolved]
  - Decreased activity [Not Recovered/Not Resolved]
  - Tongue movement disturbance [Recovering/Resolving]
  - Photopsia [Not Recovered/Not Resolved]
  - Nervousness [Not Recovered/Not Resolved]
  - Arthralgia [Not Recovered/Not Resolved]
  - Vitamin D increased [Not Recovered/Not Resolved]
  - Vitreous floaters [Not Recovered/Not Resolved]
  - Decreased appetite [Not Recovered/Not Resolved]
  - Onychophagia [Not Recovered/Not Resolved]
  - Muscle mass [Recovering/Resolving]
  - Oral disorder [Recovering/Resolving]
  - Nausea [Unknown]
  - Diplopia [Not Recovered/Not Resolved]
  - Hypoaesthesia [Not Recovered/Not Resolved]

NARRATIVE: CASE EVENT DATE: 2014
